FAERS Safety Report 5349696-0 (Version None)
Quarter: 2007Q2

REPORT INFORMATION
  Report Type: 
  Country: None (occurrence: None)
  Receive Date: 20070607
  Receipt Date: 20070529
  Transmission Date: 20071010
  Serious: Yes (Hospitalization)
  Sender: FDA-Public Use
  Company Number: US-ELI_LILLY_AND_COMPANY-US200704002466

PATIENT
  Age: 68 Year
  Sex: Female

DRUGS (3)
  1. ZYPREXA [Suspect]
     Indication: SCHIZOPHRENIA
     Dosage: 40 MG, UNK
     Route: 048
     Dates: end: 20070213
  2. DEPAKOTE [Concomitant]
     Dosage: 750 UNK, 2/D
     Dates: end: 20070213
  3. REMERON [Concomitant]
     Dosage: 15 MG, UNK
     Dates: start: 20060101

REACTIONS (22)
  - ALANINE AMINOTRANSFERASE INCREASED [None]
  - ASPARTATE AMINOTRANSFERASE INCREASED [None]
  - BLOOD CREATINE PHOSPHOKINASE INCREASED [None]
  - BODY TEMPERATURE INCREASED [None]
  - DEHYDRATION [None]
  - DELIRIUM [None]
  - DYSKINESIA [None]
  - DYSPHAGIA [None]
  - DYSPHASIA [None]
  - GAIT DISTURBANCE [None]
  - GRANULOCYTE COUNT INCREASED [None]
  - HYPERHIDROSIS [None]
  - HYPERTENSION [None]
  - LYMPHOCYTE COUNT DECREASED [None]
  - MONOCYTE COUNT INCREASED [None]
  - MUSCLE RIGIDITY [None]
  - MUTISM [None]
  - OPISTHOTONUS [None]
  - PARKINSONIAN GAIT [None]
  - PRESCRIBED OVERDOSE [None]
  - TACHYCARDIA [None]
  - TACHYPNOEA [None]
